FAERS Safety Report 7922093-7 (Version None)
Quarter: 2011Q4

REPORT INFORMATION
  Report Type: 
  Country: None (occurrence: None)
  Receive Date: 20111117
  Receipt Date: 20110412
  Transmission Date: 20120403
  Serious: Yes (Other)
  Sender: FDA-Public Use
  Company Number: US-AMGEN-USASP2011019406

PATIENT
  Age: 39 Year
  Sex: Male

DRUGS (2)
  1. METHOTREXATE [Concomitant]
     Dates: start: 20020101
  2. ENBREL [Suspect]
     Indication: ANKYLOSING SPONDYLITIS
     Dosage: 50 MG, QWK
     Dates: start: 20040101

REACTIONS (14)
  - ASTHENIA [None]
  - INCORRECT DOSE ADMINISTERED [None]
  - INJURY [None]
  - SKIN DISCOLOURATION [None]
  - INJECTION SITE SWELLING [None]
  - LACERATION [None]
  - BACK PAIN [None]
  - INJECTION SITE NODULE [None]
  - FATIGUE [None]
  - STAPHYLOCOCCAL INFECTION [None]
  - ARTHROPOD BITE [None]
  - IRRITABILITY [None]
  - ARTHRALGIA [None]
  - PAIN IN EXTREMITY [None]
